FAERS Safety Report 14079185 (Version 3)
Quarter: 2020Q1

REPORT INFORMATION
  Report Type: Spontaneous
  Country: RO (occurrence: RO)
  Receive Date: 20171012
  Receipt Date: 20200309
  Transmission Date: 20200409
  Serious: Yes (Congenital Anomaly, Other)
  Sender: FDA-Public Use
  Company Number: RO-VIIV HEALTHCARE LIMITED-RO2017GSK154814

PATIENT
  Sex: Male

DRUGS (5)
  1. COMBIVIR [Suspect]
     Active Substance: LAMIVUDINE\ZIDOVUDINE
     Dosage: PEDIATRIC FORMULATION
  2. LAMIVUDINE AND ZIDOVUDINE [Suspect]
     Active Substance: LAMIVUDINE\ZIDOVUDINE
     Indication: HIV INFECTION
     Dosage: UNK
  3. NEVIRAPINE. [Suspect]
     Active Substance: NEVIRAPINE
     Indication: HIV INFECTION
     Dosage: 400 MG, 1D
     Route: 064
  4. COMBIVIR [Suspect]
     Active Substance: LAMIVUDINE\ZIDOVUDINE
     Indication: HIV INFECTION
     Dosage: 900 MG, 1D
     Route: 064
  5. MILK POWDER [Concomitant]
     Indication: PRODUCT USED FOR UNKNOWN INDICATION

REACTIONS (9)
  - Dandy-Walker syndrome [Unknown]
  - Congenital central nervous system anomaly [Unknown]
  - Attention deficit/hyperactivity disorder [Unknown]
  - Macrocephaly [Unknown]
  - Ataxia [Unknown]
  - Speech disorder developmental [Unknown]
  - Developmental delay [Unknown]
  - Neurodevelopmental disorder [Unknown]
  - Foetal exposure during pregnancy [Unknown]
